FAERS Safety Report 8193541 (Version 6)
Quarter: 2014Q4

REPORT INFORMATION
  Report Type: Report from Study
  Country: CA (occurrence: CA)
  Receive Date: 20111021
  Receipt Date: 20141008
  Transmission Date: 20150529
  Serious: Yes (Other)
  Sender: FDA-Public Use
  Company Number: PHHY2011CA92536

PATIENT
  Sex: Female

DRUGS (2)
  1. INSULIN [Concomitant]
     Active Substance: INSULIN NOS
     Indication: PRODUCT USED FOR UNKNOWN INDICATION
     Dosage: UNK
     Route: 065
  2. CLOZARIL [Suspect]
     Active Substance: CLOZAPINE
     Indication: SCHIZOPHRENIA
     Dosage: UNK
     Route: 048
     Dates: start: 20061219

REACTIONS (17)
  - Tumour invasion [Unknown]
  - Alanine aminotransferase increased [Unknown]
  - Platelet count increased [Unknown]
  - Breast pain [Unknown]
  - Metastases to lymph nodes [Unknown]
  - Motor dysfunction [Unknown]
  - Slow speech [Unknown]
  - Haematocrit decreased [Unknown]
  - Breast mass [Unknown]
  - Agranulocytosis [Unknown]
  - Neurological symptom [Unknown]
  - Muscular weakness [Unknown]
  - Malaise [Unknown]
  - Neutropenia [Recovering/Resolving]
  - Tardive dyskinesia [Unknown]
  - Invasive ductal breast carcinoma [Unknown]
  - Inflammatory carcinoma of breast stage III [Unknown]
